FAERS Safety Report 6151500-8 (Version None)
Quarter: 2009Q2

REPORT INFORMATION
  Report Type: 
  Country: None (occurrence: None)
  Receive Date: 20090410
  Receipt Date: 20090331
  Transmission Date: 20091009
  Serious: Yes (Hospitalization)
  Sender: FDA-Public Use
  Company Number: US-AVENTIS-200913429GDDC

PATIENT
  Age: 83 Year
  Sex: Male
  Weight: 78.1 kg

DRUGS (4)
  1. TAXOTERE [Suspect]
     Route: 042
     Dates: start: 20090203, end: 20090317
  2. PREDNISONE [Suspect]
     Route: 048
     Dates: start: 20090203, end: 20090323
  3. CODE UNBROKEN [Suspect]
     Route: 048
     Dates: start: 20090203, end: 20090331
  4. DEXAMETHASONE 4MG TAB [Suspect]
     Dosage: DOSE: 8 MG 12 HOURS BEFORE, 1 HOUR BEFORE AND 12 HOURS AFTER DOCETAXEL TREATMENT
     Route: 048
     Dates: start: 20090203, end: 20090317

REACTIONS (3)
  - HYPONATRAEMIA [None]
  - LEUKOPENIA [None]
  - PNEUMONIA [None]
